FAERS Safety Report 8116763-8 (Version None)
Quarter: 2011Q4

REPORT INFORMATION
  Report Type: 
  Country: None (occurrence: None)
  Receive Date: 20111227
  Receipt Date: 20110927
  Transmission Date: 20120403
  Serious: No
  Sender: FDA-Public Use
  Company Number: PHEH2011US03703

PATIENT
  Age: 71 Year
  Sex: Female

DRUGS (9)
  1. BACLOFEN [Concomitant]
  2. ENABLEX [Concomitant]
  3. FAMPRIDINE (FAMPRIDINE) [Concomitant]
  4. ASPIRIN [Concomitant]
  5. GILENYA [Suspect]
     Indication: MULTIPLE SCLEROSIS
     Dosage: 0.5 MG, QD, ORAL
     Route: 048
  6. CEPHALEXIN [Concomitant]
  7. FLUOXETINE [Concomitant]
  8. LYRICA [Concomitant]
  9. LIPITOR [Concomitant]

REACTIONS (2)
  - COGNITIVE DISORDER [None]
  - ALOPECIA [None]
